FAERS Safety Report 19342524 (Version 1)
Quarter: 2021Q2

REPORT INFORMATION
  Report Type: Spontaneous
  Country: US (occurrence: US)
  Receive Date: 20210530
  Receipt Date: 20210530
  Transmission Date: 20210717
  Serious: Yes (Death, Other)
  Sender: FDA-Public Use
  Company Number: US-PURDUE-USA-2020-0205398

PATIENT
  Age: 51 Year
  Sex: Male

DRUGS (10)
  1. METHAMPHETAMINE [Suspect]
     Active Substance: METHAMPHETAMINE
     Indication: PAIN MANAGEMENT
     Dosage: UNK
     Route: 065
  2. OXYCODONE HCL CR TABLETS (SIMILAR TO NDA 22?272) [Suspect]
     Active Substance: OXYCODONE HYDROCHLORIDE
     Indication: PAIN MANAGEMENT
     Dosage: UNK
     Route: 048
  3. BUTRANS [Suspect]
     Active Substance: BUPRENORPHINE
     Indication: PAIN MANAGEMENT
     Dosage: UNK
     Route: 062
  4. TRAMADOL. [Suspect]
     Active Substance: TRAMADOL
     Indication: PAIN MANAGEMENT
     Dosage: UNK
     Route: 065
  5. RYZOLT [Suspect]
     Active Substance: TRAMADOL HYDROCHLORIDE
     Indication: PAIN MANAGEMENT
     Dosage: UNK
     Route: 065
  6. OXYCONTIN [Suspect]
     Active Substance: OXYCODONE HYDROCHLORIDE
     Indication: PAIN MANAGEMENT
     Dosage: UNK
     Route: 048
  7. MORPHINE SULFATE EXTENDED?RELEASE TABLETS (RHODES 74?769, 74?862) [Suspect]
     Active Substance: MORPHINE SULFATE
     Indication: PAIN MANAGEMENT
     Dosage: UNK
     Route: 048
  8. HYDROCODONE BITARTRATE AND ACETAMINOPHEN [Suspect]
     Active Substance: ACETAMINOPHEN\HYDROCODONE BITARTRATE
     Indication: PAIN MANAGEMENT
     Dosage: UNK
     Route: 048
  9. MS CONTIN [Suspect]
     Active Substance: MORPHINE SULFATE
     Indication: PAIN MANAGEMENT
     Dosage: UNK
     Route: 048
  10. FENTANYL. [Suspect]
     Active Substance: FENTANYL
     Indication: PAIN MANAGEMENT
     Dosage: UNK
     Route: 062

REACTIONS (2)
  - Overdose [Unknown]
  - Drug dependence [Unknown]

NARRATIVE: CASE EVENT DATE: 20190420
